FAERS Safety Report 5856973-3 (Version None)
Quarter: 2008Q3

REPORT INFORMATION
  Report Type: 
  Country: None (occurrence: None)
  Receive Date: 20080825
  Receipt Date: 20080821
  Transmission Date: 20090109
  Serious: Yes (Other)
  Sender: FDA-Public Use
  Company Number: ES-WYE-H05665808

PATIENT
  Sex: Male
  Weight: 73 kg

DRUGS (7)
  1. SIROLIMUS [Suspect]
     Indication: PROPHYLAXIS AGAINST TRANSPLANT REJECTION
     Route: 048
     Dates: start: 20080517, end: 20080820
  2. ACETYLSALICYLIC ACID SRT [Concomitant]
     Dosage: DOSE UNKNOWN
     Route: 065
     Dates: start: 20040204
  3. RAMIPRIL [Concomitant]
     Dosage: DOSE UNKNOWN
     Route: 065
     Dates: start: 20040806
  4. ATORVASTATIN [Concomitant]
     Dosage: DOSE UNKNOWN
     Route: 065
     Dates: start: 20071211
  5. MYCOPHENOLATE MOFETIL [Concomitant]
     Route: 048
     Dates: start: 20080620
  6. PREDNISONE TAB [Concomitant]
     Route: 048
     Dates: start: 20071211, end: 20080801
  7. PREDNISONE TAB [Concomitant]
     Route: 048
     Dates: start: 20080801

REACTIONS (1)
  - HEART TRANSPLANT REJECTION [None]
